FAERS Safety Report 26105722 (Version 1)
Quarter: 2025Q4

REPORT INFORMATION
  Report Type: Spontaneous
  Country: US (occurrence: US)
  Receive Date: 20251201
  Receipt Date: 20251201
  Transmission Date: 20260118
  Serious: No
  Sender: AMGEN
  Company Number: US-AMGEN-USASP2025234626

PATIENT
  Age: 56 Year
  Sex: Male

DRUGS (1)
  1. MVASI [Suspect]
     Active Substance: BEVACIZUMAB-AWWB
     Indication: Rectal cancer
     Dosage: UNK, ORDERED DOSE: 400MG , REPLACEMENT: 400MG VIAL
     Route: 065

REACTIONS (2)
  - Chest pain [Unknown]
  - Hospice care [Unknown]

NARRATIVE: CASE EVENT DATE: 20251124
